FAERS Safety Report 5427140-2 (Version None)
Quarter: 2007Q3

REPORT INFORMATION
  Report Type: 
  Country: None (occurrence: None)
  Receive Date: 20070828
  Receipt Date: 20070820
  Transmission Date: 20080115
  Serious: Yes (Hospitalization, Other)
  Sender: FDA-Public Use
  Company Number: PHEH2007US11381

PATIENT
  Age: 62 Year
  Sex: Male
  Weight: 74.376 kg

DRUGS (7)
  1. ZOMETA [Suspect]
     Indication: METASTASES TO BONE
     Dates: end: 20051101
  2. LUPRON [Concomitant]
     Indication: PROSTATE CANCER
     Dosage: UNK, UNK
  3. OXYCONTIN [Concomitant]
     Dosage: 50 MG, BID
     Route: 048
  4. OXYCODONE HCL [Concomitant]
     Dosage: 3 MG, QD
     Route: 048
  5. CARDURA [Concomitant]
     Dosage: 12 MG, QD
     Route: 048
  6. ACYCLOVIR [Concomitant]
     Dosage: 200 MG, QD
     Route: 048
  7. TEVETEN [Concomitant]
     Dosage: 600 MG, QD
     Route: 048

REACTIONS (27)
  - ABSCESS [None]
  - ALCOHOL POISONING [None]
  - ANGIOPATHY [None]
  - BONE DISORDER [None]
  - COMPUTERISED TOMOGRAM ABNORMAL [None]
  - DEPRESSION [None]
  - DYSPHAGIA [None]
  - FACE AND MOUTH X-RAY ABNORMAL [None]
  - FALL [None]
  - GASTRIC ULCER [None]
  - GASTRIC ULCER SURGERY [None]
  - GASTRITIS [None]
  - GASTROSTOMY TUBE INSERTION [None]
  - HYPERBARIC OXYGEN THERAPY [None]
  - HYPERTENSION [None]
  - JAW OPERATION [None]
  - LACERATION [None]
  - MALIGNANT NEOPLASM PROGRESSION [None]
  - OSTEOMYELITIS [None]
  - OSTEONECROSIS [None]
  - PAIN IN JAW [None]
  - STENT PLACEMENT [None]
  - SUTURE INSERTION [None]
  - TENDERNESS [None]
  - WOUND [None]
  - WOUND DEBRIDEMENT [None]
  - WOUND NECROSIS [None]
